FAERS Safety Report 23041450 (Version 2)
Quarter: 2023Q4

REPORT INFORMATION
  Report Type: Spontaneous
  Country: FR (occurrence: FR)
  Receive Date: 20231007
  Receipt Date: 20231020
  Transmission Date: 20240110
  Serious: Yes (Other)
  Sender: FDA-Public Use
  Company Number: FR-AMGEN-FRASP2023174712

PATIENT
  Age: 69 Year
  Sex: Male

DRUGS (1)
  1. LUMAKRAS [Suspect]
     Active Substance: SOTORASIB
     Indication: Adenocarcinoma
     Dosage: 960 MILLIGRAM, QD
     Route: 048
     Dates: start: 20230524, end: 20230904

REACTIONS (2)
  - Cholestasis [Recovering/Resolving]
  - Hepatic cytolysis [Recovered/Resolved]

NARRATIVE: CASE EVENT DATE: 20230713
